FAERS Safety Report 5304584-0 (Version None)
Quarter: 2007Q2

REPORT INFORMATION
  Report Type: 
  Country: None (occurrence: None)
  Receive Date: 20070423
  Receipt Date: 20070420
  Transmission Date: 20071010
  Serious: Yes (Other)
  Sender: FDA-Public Use
  Company Number: US-GLAXOSMITHKLINE-A0648201A

PATIENT
  Sex: Female

DRUGS (5)
  1. COMBIVIR [Suspect]
     Indication: HIV INFECTION
     Dosage: 2TAB PER DAY
     Dates: start: 20070322
  2. ATRIPLA [Concomitant]
     Dosage: 1U PER DAY
     Dates: start: 20061116
  3. VIRACEPT [Concomitant]
     Dosage: 2500MG PER DAY
     Dates: start: 20070322
  4. ALCOHOL [Concomitant]
  5. TOBACCO [Concomitant]

REACTIONS (3)
  - CEREBRAL VENTRICLE DILATATION [None]
  - DRUG EXPOSURE DURING PREGNANCY [None]
  - SPINA BIFIDA [None]
